FAERS Safety Report 7345131-1 (Version None)
Quarter: 2011Q1

REPORT INFORMATION
  Report Type: 
  Country: None (occurrence: None)
  Receive Date: 20110310
  Receipt Date: 20110202
  Transmission Date: 20110831
  Serious: No
  Sender: FDA-Public Use
  Company Number: US-B.I. PHARMACEUTICALS,INC./RIDGEFIELD-2011-BP-00334BP

PATIENT
  Age: 77 Year
  Sex: Male

DRUGS (6)
  1. SAW PALMETTO [Concomitant]
     Indication: PROSTATOMEGALY
     Route: 048
  2. PRADAXA [Suspect]
     Indication: ATRIAL FIBRILLATION
     Dosage: 300 MG
     Route: 048
     Dates: start: 20101202
  3. PRADAXA [Suspect]
     Indication: DRUG THERAPY CHANGED
  4. STIMVASTATIN [Concomitant]
     Indication: BLOOD CHOLESTEROL INCREASED
     Dosage: 80 MG
     Route: 048
     Dates: start: 20080101
  5. FLOMAX [Concomitant]
     Indication: PROSTATOMEGALY
     Dosage: 4 MG
     Route: 048
     Dates: start: 20080101
  6. PROSCAR [Concomitant]
     Indication: PROSTATOMEGALY
     Dosage: 4 MG
     Route: 048
     Dates: start: 20080101

REACTIONS (3)
  - CONTUSION [None]
  - HAEMORRHOIDAL HAEMORRHAGE [None]
  - COLITIS ULCERATIVE [None]
